FAERS Safety Report 16904142 (Version 2)
Quarter: 2019Q4

REPORT INFORMATION
  Report Type: Spontaneous
  Country: US (occurrence: US)
  Receive Date: 20191010
  Receipt Date: 20191106
  Transmission Date: 20200122
  Serious: No
  Sender: FDA-Public Use
  Company Number: US-VERTEX PHARMACEUTICALS-2019-009521

PATIENT
  Sex: Female

DRUGS (7)
  1. ALBUTEROL [SALBUTAMOL] [Concomitant]
     Active Substance: ALBUTEROL
  2. PULMOZYME [Concomitant]
     Active Substance: DORNASE ALFA
  3. ORKAMBI [Suspect]
     Active Substance: IVACAFTOR\LUMACAFTOR
     Indication: CYSTIC FIBROSIS
     Dosage: (150MG/ 188MG GRANULES) 1 PACKET, BID
     Route: 048
     Dates: start: 20190705
  4. SODIUM CHLORIDE. [Concomitant]
     Active Substance: SODIUM CHLORIDE
  5. AUGMENTINE [AMOXICILLIN;CLAVULANIC ACID] [Concomitant]
     Active Substance: AMOXICILLIN\CLAVULANIC ACID
  6. CREON [Concomitant]
     Active Substance: PANCRELIPASE AMYLASE\PANCRELIPASE LIPASE\PANCRELIPASE PROTEASE
  7. AMOXYCILLIN/CLAVULANIC ACID GENERIC HEALTH [Concomitant]
     Active Substance: AMOXICILLIN\CLAVULANIC ACID

REACTIONS (6)
  - Rhinorrhoea [Unknown]
  - Oropharyngeal pain [Unknown]
  - Anger [Not Recovered/Not Resolved]
  - Crying [Not Recovered/Not Resolved]
  - Lacrimation increased [Unknown]
  - Mood altered [Not Recovered/Not Resolved]

NARRATIVE: CASE EVENT DATE: 2019
